FAERS Safety Report 19846543 (Version 1)
Quarter: 2021Q3

REPORT INFORMATION
  Report Type: Spontaneous
  Country: US (occurrence: US)
  Receive Date: 20210917
  Receipt Date: 20210917
  Transmission Date: 20211014
  Serious: Yes (Death, Life-Threatening, Hospitalization, Disabling)
  Sender: FDA-Public Use
  Company Number: US-MYLANLABS-2021M1063016

PATIENT
  Age: 7 Decade
  Sex: Male

DRUGS (27)
  1. DOXORUBICIN [Suspect]
     Active Substance: DOXORUBICIN
     Indication: DIFFUSE LARGE B-CELL LYMPHOMA STAGE IV
     Dosage: INITIALLY RECEIVED AS PART OF R?CHOP REGIMEN (8 CYCLES); LATER RECEIVED AS PART OF R?IVAC REGIMEN...
     Route: 065
  2. PREDNISONE. [Suspect]
     Active Substance: PREDNISONE
     Indication: DIFFUSE LARGE B-CELL LYMPHOMA STAGE IV
     Dosage: AS PART OF R?CHOP REGIMEN (8 CYCLES)
     Route: 065
  3. OXALIPLATIN. [Suspect]
     Active Substance: OXALIPLATIN
     Indication: DIFFUSE LARGE B-CELL LYMPHOMA
     Dosage: RECEIVED AS A PART OF R?GEMOX REGIMEN (FOUR CYCLES)
     Route: 065
  4. GEMCITABINE. [Suspect]
     Active Substance: GEMCITABINE
     Indication: DIFFUSE LARGE B-CELL LYMPHOMA
     Dosage: UNK
     Route: 065
  5. CYCLOPHOSPHAMIDE. [Suspect]
     Active Substance: CYCLOPHOSPHAMIDE
     Indication: DIFFUSE LARGE B-CELL LYMPHOMA RECURRENT
  6. MICAFUNGIN. [Concomitant]
     Active Substance: MICAFUNGIN SODIUM
     Indication: ASPERGILLUS INFECTION
     Dosage: UNK
     Route: 065
  7. MICAFUNGIN. [Concomitant]
     Active Substance: MICAFUNGIN SODIUM
     Indication: SCEDOSPORIUM INFECTION
  8. CYTARABINE. [Suspect]
     Active Substance: CYTARABINE
     Indication: BONE MARROW CONDITIONING REGIMEN
     Dosage: RECEIVED AS A PART OF BEAM CONDITIONING
     Route: 065
  9. MELPHALAN. [Suspect]
     Active Substance: MELPHALAN
     Indication: BONE MARROW CONDITIONING REGIMEN
     Dosage: RECEIVED AS A PART OF BEAM CONDITIONING
     Route: 065
  10. CYCLOPHOSPHAMIDE. [Suspect]
     Active Substance: CYCLOPHOSPHAMIDE
     Indication: DIFFUSE LARGE B-CELL LYMPHOMA STAGE IV
     Dosage: INITIALLY RECEIVED AS PART OF R?CHOP REGIMEN (8 CYCLES); LATER RECEIVED AS PART OF R?IVAC REGIMEN
     Route: 065
  11. METHOTREXATE INJECTION, USP [Suspect]
     Active Substance: METHOTREXATE
     Indication: PROPHYLAXIS
     Dosage: UNK
     Route: 037
  12. IFOSFAMIDE. [Suspect]
     Active Substance: IFOSFAMIDE
     Indication: DIFFUSE LARGE B-CELL LYMPHOMA RECURRENT
     Dosage: RECEIVED AS A PART OF R?IVAC REGIMEN
     Route: 065
  13. RITUXIMAB. [Suspect]
     Active Substance: RITUXIMAB
     Indication: DIFFUSE LARGE B-CELL LYMPHOMA STAGE IV
     Dosage: INITIALLY AS PART OF R?CHOP REGIMEN (8 CYCLES);..
     Route: 065
  14. TERBINAFINE. [Concomitant]
     Active Substance: TERBINAFINE
     Indication: SYSTEMIC MYCOSIS
  15. ETOPOSIDE. [Suspect]
     Active Substance: ETOPOSIDE
     Indication: BONE MARROW CONDITIONING REGIMEN
     Dosage: RECEIVED AS A PART OF BEAM CONDITIONING
     Route: 065
  16. VINCRISTINE [Suspect]
     Active Substance: VINCRISTINE
     Indication: DIFFUSE LARGE B-CELL LYMPHOMA STAGE IV
     Dosage: INITIALLY RECEIVED AS PART OF R?CHOP REGIMEN (8 CYCLES); LATER RECEIVED AS PART OF R?IVAC REGIMEN...
     Route: 065
  17. VORICONAZOLE. [Concomitant]
     Active Substance: VORICONAZOLE
     Indication: SCEDOSPORIUM INFECTION
  18. DOXORUBICIN [Suspect]
     Active Substance: DOXORUBICIN
     Indication: DIFFUSE LARGE B-CELL LYMPHOMA RECURRENT
  19. RITUXIMAB. [Suspect]
     Active Substance: RITUXIMAB
     Indication: DIFFUSE LARGE B-CELL LYMPHOMA RECURRENT
  20. VINCRISTINE [Suspect]
     Active Substance: VINCRISTINE
     Indication: DIFFUSE LARGE B-CELL LYMPHOMA RECURRENT
  21. MICAFUNGIN. [Concomitant]
     Active Substance: MICAFUNGIN SODIUM
     Indication: SYSTEMIC MYCOSIS
  22. CARMUSTINE. [Suspect]
     Active Substance: CARMUSTINE
     Indication: BONE MARROW CONDITIONING REGIMEN
     Dosage: RECEIVED AS A PART OF BEAM CONDITIONING
     Route: 065
  23. VORICONAZOLE. [Concomitant]
     Active Substance: VORICONAZOLE
     Indication: ASPERGILLUS INFECTION
     Dosage: UNK
     Route: 065
  24. VORICONAZOLE. [Concomitant]
     Active Substance: VORICONAZOLE
     Indication: SYSTEMIC MYCOSIS
  25. TERBINAFINE. [Concomitant]
     Active Substance: TERBINAFINE
     Indication: ASPERGILLUS INFECTION
     Dosage: UNK
     Route: 065
  26. TERBINAFINE. [Concomitant]
     Active Substance: TERBINAFINE
     Indication: SCEDOSPORIUM INFECTION
  27. TERBINAFINE. [Concomitant]
     Active Substance: TERBINAFINE
     Indication: ARTHRALGIA

REACTIONS (7)
  - Infection [Fatal]
  - Aspergillus infection [Recovering/Resolving]
  - Neutropenia [Unknown]
  - Systemic mycosis [Fatal]
  - Respiratory failure [Unknown]
  - Scedosporium infection [Fatal]
  - Renal failure [Unknown]
